FAERS Safety Report 9842746 (Version 1)
Quarter: 2014Q1

REPORT INFORMATION
  Report Type: Spontaneous
  Country: US (occurrence: US)
  Receive Date: 20140124
  Receipt Date: 20140124
  Transmission Date: 20141002
  Serious: No
  Sender: FDA-Public Use
  Company Number: US-BAYER-2014-011663

PATIENT
  Age: 34 Year
  Sex: Female

DRUGS (2)
  1. GADAVIST [Suspect]
     Indication: NUCLEAR MAGNETIC RESONANCE IMAGING BRAIN
     Dosage: 11.4 ML, ONCE
     Dates: start: 20140121, end: 20140121
  2. GADAVIST [Suspect]
     Indication: MULTIPLE SCLEROSIS

REACTIONS (2)
  - Urticaria [None]
  - Nausea [None]
